FAERS Safety Report 21380762 (Version 1)
Quarter: 2022Q3

REPORT INFORMATION
  Report Type: Spontaneous
  Country: DE (occurrence: DE)
  Receive Date: 20220927
  Receipt Date: 20220927
  Transmission Date: 20221026
  Serious: Yes (Other)
  Sender: FDA-Public Use
  Company Number: None

PATIENT
  Age: 64 Year
  Sex: Female
  Weight: 73 kg

DRUGS (1)
  1. PAXLOVID [Suspect]
     Active Substance: NIRMATRELVIR\RITONAVIR
     Indication: COVID-19
     Dosage: 1 DF, 1X/DAY, FOR 5 DAYS
     Route: 048
     Dates: start: 202209, end: 202209

REACTIONS (5)
  - Incorrect dose administered [Unknown]
  - Product use issue [Recovered/Resolved]
  - Underdose [Recovered/Resolved]
  - Inappropriate antidiuretic hormone secretion [Unknown]
  - Hyponatraemia [Unknown]

NARRATIVE: CASE EVENT DATE: 20220901
